FAERS Safety Report 24744217 (Version 1)
Quarter: 2024Q4

REPORT INFORMATION
  Report Type: Spontaneous
  Country: US (occurrence: None)
  Receive Date: 20241217
  Receipt Date: 20241217
  Transmission Date: 20250115
  Serious: Yes (Hospitalization)
  Sender: Public
  Company Number: None

PATIENT
  Sex: Male

DRUGS (6)
  1. GAMMAGARD LIQUID [Suspect]
     Active Substance: HUMAN IMMUNOGLOBULIN G
     Indication: Myasthenia gravis
     Dosage: OTHER FREQUENCY : DAILYFOR2DAYSEVERY3WEEKS;?
     Route: 042
     Dates: start: 202409
  2. SODIUM CHLOR(5OOML/BAG) [Concomitant]
  3. DIPHENHYDRAMINE {ALLERGY) [Concomitant]
  4. NORMAL SALINE FLUSH (SML) [Concomitant]
  5. HEPARIN L/L FLUSH SYR (5ML) [Concomitant]
  6. EPINEPHRINE AUTO-INJ [Concomitant]

REACTIONS (1)
  - Malaise [None]
